FAERS Safety Report 23607116 (Version 1)
Quarter: 2024Q1

REPORT INFORMATION
  Report Type: Spontaneous
  Country: FR (occurrence: FR)
  Receive Date: 20240307
  Receipt Date: 20240307
  Transmission Date: 20240409
  Serious: Yes (Other)
  Sender: FDA-Public Use
  Company Number: FR-PFIZER INC-202300305721

PATIENT
  Age: 77 Year
  Sex: Female

DRUGS (13)
  1. DOBUTAMINE HYDROCHLORIDE [Suspect]
     Active Substance: DOBUTAMINE HYDROCHLORIDE
     Dosage: 7 UG/KG/MIN
  2. ATROPINE [Suspect]
     Active Substance: ATROPINE\ATROPINE SULFATE
     Indication: Hypoxia
     Dosage: 1 MG
     Route: 042
  3. EPHEDRINE [Suspect]
     Active Substance: EPHEDRINE
     Indication: Hypoxia
     Dosage: TOTAL OF 15 MG
     Route: 042
  4. NOREPINEPHRINE [Suspect]
     Active Substance: NOREPINEPHRINE\NOREPINEPHRINE BITARTRATE
     Indication: Hypotension
     Dosage: INCREASING DOSES UP TO 3 UG/KG/MIN
     Route: 042
  5. NOREPINEPHRINE [Suspect]
     Active Substance: NOREPINEPHRINE\NOREPINEPHRINE BITARTRATE
     Indication: Tachycardia
  6. ASPIRIN [Concomitant]
     Active Substance: ASPIRIN
     Indication: Acute myocardial infarction
     Dosage: 500 MG, DAILY
  7. ASPIRIN [Concomitant]
     Active Substance: ASPIRIN
     Indication: Antiplatelet therapy
  8. ENOXAPARIN [Concomitant]
     Active Substance: ENOXAPARIN
     Indication: Acute myocardial infarction
     Dosage: 50 MG, 2X/DAY
  9. ENOXAPARIN [Concomitant]
     Active Substance: ENOXAPARIN
     Indication: Antiplatelet therapy
  10. AMIODARONE [Concomitant]
     Active Substance: AMIODARONE
     Indication: Acute myocardial infarction
     Dosage: 200 MG, 3X/DAY
  11. AMIODARONE [Concomitant]
     Active Substance: AMIODARONE
     Indication: Antiplatelet therapy
  12. PRAVASTATIN [Concomitant]
     Active Substance: PRAVASTATIN
     Indication: Acute myocardial infarction
     Dosage: UNK
  13. PRAVASTATIN [Concomitant]
     Active Substance: PRAVASTATIN
     Indication: Antiplatelet therapy

REACTIONS (1)
  - Acquired left ventricle outflow tract obstruction [Recovered/Resolved]
